FAERS Safety Report 25681740 (Version 2)
Quarter: 2025Q4

REPORT INFORMATION
  Report Type: Spontaneous
  Country: US (occurrence: AU)
  Receive Date: 20250814
  Receipt Date: 20251114
  Transmission Date: 20260118
  Serious: Yes (Hospitalization, Other)
  Sender: RANBAXY
  Company Number: US-SUN PHARMACEUTICAL INDUSTRIES LTD-2025R1-513106

PATIENT
  Age: 7 Decade
  Sex: Female
  Weight: 94 kg

DRUGS (5)
  1. SERTRALINE [Suspect]
     Active Substance: SERTRALINE HYDROCHLORIDE
     Indication: Depression
     Dosage: 100 MILLIGRAM, DAILY
     Route: 048
  2. AMITRIPTYLINE [Suspect]
     Active Substance: AMITRIPTYLINE
     Indication: Sleep disorder
     Dosage: 25 MILLIGRAM, DAILY
     Route: 048
  3. AMITRIPTYLINE [Suspect]
     Active Substance: AMITRIPTYLINE
     Indication: Depression
  4. PREGABALIN [Suspect]
     Active Substance: PREGABALIN
     Indication: Depression
     Dosage: 50MG IN THE MORNING AND 75MG AT NIGHT
     Route: 048
  5. OXYCODONE [Suspect]
     Active Substance: OXYCODONE
     Indication: Abdominal pain upper
     Dosage: 5 MILLIGRAM
     Route: 048

REACTIONS (5)
  - Disease progression [Unknown]
  - Serotonin syndrome [Recovered/Resolved]
  - Delirium [Recovering/Resolving]
  - Cholestasis [Unknown]
  - Off label use [Unknown]

NARRATIVE: CASE EVENT DATE: 20241216
